FAERS Safety Report 25066480 (Version 1)
Quarter: 2025Q1

REPORT INFORMATION
  Report Type: Spontaneous
  Country: US (occurrence: US)
  Receive Date: 20250312
  Receipt Date: 20250312
  Transmission Date: 20250409
  Serious: No
  Sender: ELI LILLY AND COMPANY
  Company Number: US-ELI_LILLY_AND_COMPANY-US202503007870

PATIENT
  Age: 33 Year
  Sex: Female

DRUGS (8)
  1. MOUNJARO [Suspect]
     Active Substance: TIRZEPATIDE
     Indication: Polycystic ovarian syndrome
     Route: 065
     Dates: start: 202407
  2. MOUNJARO [Suspect]
     Active Substance: TIRZEPATIDE
     Indication: Polycystic ovarian syndrome
     Route: 065
     Dates: start: 202407
  3. MOUNJARO [Suspect]
     Active Substance: TIRZEPATIDE
     Indication: Polycystic ovarian syndrome
     Route: 065
     Dates: start: 202407
  4. MOUNJARO [Suspect]
     Active Substance: TIRZEPATIDE
     Indication: Polycystic ovarian syndrome
     Route: 065
     Dates: start: 202407
  5. MOUNJARO [Suspect]
     Active Substance: TIRZEPATIDE
     Indication: Polycystic ovarian syndrome
     Route: 065
  6. MOUNJARO [Suspect]
     Active Substance: TIRZEPATIDE
     Indication: Polycystic ovarian syndrome
     Route: 065
  7. MOUNJARO [Suspect]
     Active Substance: TIRZEPATIDE
     Indication: Polycystic ovarian syndrome
     Route: 065
  8. MOUNJARO [Suspect]
     Active Substance: TIRZEPATIDE
     Indication: Polycystic ovarian syndrome
     Route: 065

REACTIONS (3)
  - Off label use [Unknown]
  - Product dose omission issue [Unknown]
  - Nasopharyngitis [Unknown]

NARRATIVE: CASE EVENT DATE: 20240701
